FAERS Safety Report 23384780 (Version 2)
Quarter: 2024Q1

REPORT INFORMATION
  Report Type: Spontaneous
  Country: FR (occurrence: FR)
  Receive Date: 20240109
  Receipt Date: 20240129
  Transmission Date: 20240409
  Serious: Yes (Death, Hospitalization)
  Sender: FDA-Public Use
  Company Number: None

PATIENT
  Sex: Female

DRUGS (3)
  1. SPRAVATO [Suspect]
     Active Substance: ESKETAMINE
     Indication: Depression
     Dosage: //2023-END DATE
     Dates: start: 202302
  2. SPRAVATO [Suspect]
     Active Substance: ESKETAMINE
     Dosage: //2023-START DATE, FOR SEVERAL WEEKS
  3. DULOXETINE [Suspect]
     Active Substance: DULOXETINE
     Indication: Depression
     Route: 048

REACTIONS (3)
  - Completed suicide [Fatal]
  - Depression [Unknown]
  - Adverse event [Unknown]

NARRATIVE: CASE EVENT DATE: 20230901
